FAERS Safety Report 25456602 (Version 1)
Quarter: 2025Q2

REPORT INFORMATION
  Report Type: Spontaneous
  Country: US (occurrence: US)
  Receive Date: 20250619
  Receipt Date: 20250619
  Transmission Date: 20250716
  Serious: No
  Sender: FRESENIUS KABI
  Company Number: US-FreseniusKabi-FK202507971

PATIENT
  Sex: Female

DRUGS (1)
  1. ADALIMUMAB-AACF [Suspect]
     Active Substance: ADALIMUMAB-AACF
     Indication: Product used for unknown indication

REACTIONS (2)
  - Pain [Unknown]
  - Product dose omission issue [Unknown]

NARRATIVE: CASE EVENT DATE: 20250501
